FAERS Safety Report 5252296-4 (Version None)
Quarter: 2007Q1

REPORT INFORMATION
  Report Type: 
  Country: None (occurrence: None)
  Receive Date: 20070301
  Receipt Date: 20060124
  Transmission Date: 20070707
  Serious: No
  Sender: FDA-Public Use
  Company Number: US-BRISTOL-MYERS SQUIBB COMPANY-13258058

PATIENT
  Sex: Female

DRUGS (10)
  1. TAXOL [Suspect]
     Indication: BREAST CANCER
     Route: 042
     Dates: start: 20060123, end: 20060123
  2. CARBOPLATIN [Suspect]
     Indication: BREAST CANCER
     Route: 042
     Dates: start: 20060123, end: 20060123
  3. DECADRON [Concomitant]
  4. COLACE [Concomitant]
  5. FLORINEF [Concomitant]
  6. REMERON [Concomitant]
  7. QUINAPRIL [Concomitant]
  8. LOVENOX [Concomitant]
  9. TOPROL-XL [Concomitant]
  10. SENOKOT [Concomitant]

REACTIONS (1)
  - INFUSION SITE EXTRAVASATION [None]
